FAERS Safety Report 12372338 (Version 1)
Quarter: 2016Q2

REPORT INFORMATION
  Report Type: Spontaneous
  Country: US (occurrence: US)
  Receive Date: 20160516
  Receipt Date: 20160516
  Transmission Date: 20160815
  Serious: Yes (Congenital Anomaly, Other)
  Sender: FDA-Public Use
  Company Number: US-PFIZER INC-2016209026

PATIENT

DRUGS (4)
  1. ADRIAMYCIN [Suspect]
     Active Substance: DOXORUBICIN HYDROCHLORIDE
     Dosage: 50 MG/M2, MONTHLY (RECEIVED 2 CYCLES COINCIDING WITH 5WEEKS AND 10 WEEKS OF GESTATION)
     Route: 064
  2. CYCLOPHOSPHAMIDE. [Suspect]
     Active Substance: CYCLOPHOSPHAMIDE
     Indication: CHEMOTHERAPY
     Dosage: 500 MG/M2, MONTHLY (RECEIVED 2 CYCLES COINCIDING WITH 5WEEKS AND 10 WEEKS OF GESTATION)
     Route: 064
  3. ADRIAMYCIN [Suspect]
     Active Substance: DOXORUBICIN HYDROCHLORIDE
     Indication: AUTOSOMAL CHROMOSOME ANOMALY
     Dosage: UNK
     Route: 064
  4. CISPLATIN. [Suspect]
     Active Substance: CISPLATIN
     Indication: CHEMOTHERAPY
     Dosage: 100 MG/M2, MONTHLY (RECEIVED 2 CYCLES COINCIDING WITH 5WEEKS AND 10 WEEKS OF GESTATION)
     Route: 064

REACTIONS (4)
  - Maternal exposure during pregnancy [Unknown]
  - Microcephaly [Unknown]
  - Blepharophimosis [Unknown]
  - Hydrocephalus [Unknown]
